FAERS Safety Report 13056079 (Version 1)
Quarter: 2016Q4

REPORT INFORMATION
  Report Type: Spontaneous
  Country: FR (occurrence: FR)
  Receive Date: 20161222
  Receipt Date: 20161222
  Transmission Date: 20170207
  Serious: Yes (Other)
  Sender: FDA-Public Use
  Company Number: FR-ELI_LILLY_AND_COMPANY-FR201612005294

PATIENT
  Age: 59 Year
  Sex: Female

DRUGS (1)
  1. ZYPREXA [Suspect]
     Active Substance: OLANZAPINE
     Indication: MENTAL DISORDER
     Dosage: UNK UNK, UNKNOWN
     Route: 065
     Dates: start: 2012

REACTIONS (8)
  - Secretion discharge [Unknown]
  - Pain [Unknown]
  - Muscle tightness [Unknown]
  - Erythema [Unknown]
  - Swelling [Unknown]
  - Dry mouth [Unknown]
  - Chest discomfort [Unknown]
  - Joint stiffness [Unknown]
